FAERS Safety Report 7086847-4 (Version None)
Quarter: 2010Q4

REPORT INFORMATION
  Report Type: 
  Country: None (occurrence: None)
  Receive Date: 20101105
  Receipt Date: 20101025
  Transmission Date: 20110411
  Serious: Yes (Death, Other)
  Sender: FDA-Public Use
  Company Number: US-AMGEN-QUU443872

PATIENT

DRUGS (7)
  1. NPLATE [Suspect]
     Indication: IDIOPATHIC THROMBOCYTOPENIC PURPURA
     Dosage: 2 A?G/KG, UNK
     Dates: start: 20091102, end: 20100611
  2. NPLATE [Suspect]
     Dates: start: 20091026
  3. NPLATE [Suspect]
     Dates: start: 20091026
  4. NPLATE [Suspect]
     Dates: start: 20091026
  5. NPLATE [Suspect]
     Dates: start: 20091026
  6. NPLATE [Suspect]
     Dates: start: 20091026
  7. CORTICOSTEROID NOS [Concomitant]
     Dosage: UNK UNK, UNK

REACTIONS (7)
  - BLOOD UREA ABNORMAL [None]
  - INTERSTITIAL LUNG DISEASE [None]
  - IRON DEFICIENCY ANAEMIA [None]
  - PNEUMONIA [None]
  - RENAL FAILURE CHRONIC [None]
  - SEPSIS [None]
  - WOUND [None]
